FAERS Safety Report 11796514 (Version 3)
Quarter: 2016Q3

REPORT INFORMATION
  Report Type: Spontaneous
  Country: US (occurrence: US)
  Receive Date: 20151203
  Receipt Date: 20160826
  Transmission Date: 20161109
  Serious: Yes (Death, Other)
  Sender: FDA-Public Use
  Company Number: US-BRISTOL-MYERS SQUIBB COMPANY-BMS-2015-080699

PATIENT
  Age: 86 Year
  Sex: Female

DRUGS (2)
  1. SPRYCEL [Suspect]
     Active Substance: DASATINIB
     Indication: CHRONIC MYELOID LEUKAEMIA
     Dosage: 100 MG, QD
     Route: 048
     Dates: start: 20151022, end: 20151112
  2. HYDREA [Suspect]
     Active Substance: HYDROXYUREA
     Indication: LEUKOCYTOSIS
     Route: 065

REACTIONS (2)
  - Pancytopenia [Fatal]
  - Product use issue [Unknown]

NARRATIVE: CASE EVENT DATE: 20151106
